FAERS Safety Report 8981374 (Version 3)
Quarter: 2013Q1

REPORT INFORMATION
  Report Type: Report from Study
  Country: US (occurrence: US)
  Receive Date: 20121221
  Receipt Date: 20130117
  Transmission Date: 20140127
  Serious: No
  Sender: FDA-Public Use
  Company Number: US-VERTEX PHARMACEUTICALS INC.-2012-026472

PATIENT
  Age: 45 None
  Sex: Male
  Weight: 82 kg

DRUGS (5)
  1. VX-950 (TELAPREVIR) [Suspect]
     Indication: HEPATITIS C
     Dosage: 750 MG, TID
     Route: 048
     Dates: start: 201212, end: 20130114
  2. RIBAVIRIN [Suspect]
     Indication: HEPATITIS C
     Dosage: 200 MG, UNK
     Dates: start: 201212, end: 20130114
  3. PEGASYS [Suspect]
     Indication: HEPATITIS C
     Dosage: 180 ?G, QW
     Dates: start: 201212, end: 20130114
  4. CENTRUM                            /02217401/ [Concomitant]
  5. IMODIUM A-D [Concomitant]
     Dosage: 2 MG, UNK

REACTIONS (9)
  - Vision blurred [Unknown]
  - Mouth haemorrhage [Unknown]
  - Asthenia [Unknown]
  - Drug ineffective [Not Recovered/Not Resolved]
  - Haemorrhoids [Unknown]
  - Diarrhoea [Unknown]
  - Anorectal discomfort [Unknown]
  - Anal pruritus [Unknown]
  - Pruritus [Unknown]
